FAERS Safety Report 17219997 (Version 2)
Quarter: 2021Q1

REPORT INFORMATION
  Report Type: Report from Study
  Country: US (occurrence: US)
  Receive Date: 20191231
  Receipt Date: 20210224
  Transmission Date: 20210419
  Serious: No
  Sender: FDA-Public Use
  Company Number: US-SA-2019SA360416

PATIENT
  Age: 61 Year
  Sex: Female

DRUGS (2)
  1. DUPIXENT [Suspect]
     Active Substance: DUPILUMAB
     Dosage: 300 UNK
     Route: 058
     Dates: start: 20191002
  2. DUPIXENT [Suspect]
     Active Substance: DUPILUMAB
     Indication: ASTHMA
     Dosage: 600 MG, 1X
     Route: 058
     Dates: start: 20190918, end: 20190918

REACTIONS (7)
  - Product use issue [Unknown]
  - Unevaluable event [Unknown]
  - Anxiety [Unknown]
  - Mental disorder [Unknown]
  - Rash [Recovering/Resolving]
  - Eye disorder [Unknown]
  - Depression [Unknown]

NARRATIVE: CASE EVENT DATE: 20190918
